FAERS Safety Report 10600195 (Version 2)
Quarter: 2014Q4

REPORT INFORMATION
  Report Type: Report from Study
  Country: NL (occurrence: NL)
  Receive Date: 20141122
  Receipt Date: 20141122
  Transmission Date: 20150529
  Serious: Yes (Life-Threatening, Hospitalization)
  Sender: FDA-Public Use
  Company Number: NL-ROCHE-1388918

PATIENT
  Age: 52 Year
  Sex: Female

DRUGS (4)
  1. CAPECITABINE. [Suspect]
     Active Substance: CAPECITABINE
     Indication: GASTRIC CANCER
     Dosage: CYCLE 8
     Route: 048
     Dates: start: 20131107, end: 20140421
  2. CAPECITABINE. [Suspect]
     Active Substance: CAPECITABINE
     Route: 048
     Dates: start: 20131107, end: 20140421
  3. CISPLATIN. [Suspect]
     Active Substance: CISPLATIN
     Indication: GASTRIC CANCER
     Dosage: CYCLE 8, TOTAL DOSE RECEIVED: 285+150 MG
     Route: 042
     Dates: start: 20131107, end: 20140414
  4. EPIRUBICIN [Suspect]
     Active Substance: EPIRUBICIN
     Indication: GASTRIC CANCER
     Dosage: CYCLE 8
     Route: 042
     Dates: start: 20131107, end: 20131219

REACTIONS (2)
  - Small intestinal perforation [Recovered/Resolved with Sequelae]
  - Malaise [Recovered/Resolved]

NARRATIVE: CASE EVENT DATE: 20140420
